FAERS Safety Report 23810043 (Version 1)
Quarter: 2024Q2

REPORT INFORMATION
  Report Type: Spontaneous
  Country: JP (occurrence: JP)
  Receive Date: 20240502
  Receipt Date: 20240502
  Transmission Date: 20240716
  Serious: Yes (Hospitalization, Other)
  Sender: FDA-Public Use
  Company Number: JP-MLMSERVICE-20240415-PI026305-00226-1

PATIENT
  Age: 30 Year
  Sex: Male

DRUGS (3)
  1. MIRTAZAPINE [Suspect]
     Active Substance: MIRTAZAPINE
     Dosage: 200 MILLIGRAM, ONCE
  2. LURASIDONE [Suspect]
     Active Substance: LURASIDONE
  3. VENLAFAXINE [Suspect]
     Active Substance: VENLAFAXINE HYDROCHLORIDE
     Dosage: 23 DOSAGE FORM, ONCE

REACTIONS (2)
  - Serotonin syndrome [Recovering/Resolving]
  - Overdose [Unknown]
